FAERS Safety Report 8336931-X (Version None)
Quarter: 2012Q2

REPORT INFORMATION
  Report Type: 
  Country: None (occurrence: None)
  Receive Date: 20120504
  Receipt Date: 20120425
  Transmission Date: 20120825
  Serious: Yes (Hospitalization)
  Sender: FDA-Public Use
  Company Number: US-SANOFI-AVENTIS-2012SA027614

PATIENT
  Age: 72 Year
  Sex: Female
  Weight: 73.12 kg

DRUGS (22)
  1. OXYCODONE HCL [Concomitant]
     Route: 048
     Dates: start: 20120419
  2. SENOKOT [Concomitant]
     Route: 048
     Dates: start: 20120420
  3. COMPAZINE [Concomitant]
     Route: 048
  4. HUMULIN R [Concomitant]
     Dosage: DOSE:3 UNIT(S)
     Dates: start: 20120419
  5. LEUCOVORIN CALCIUM [Suspect]
     Indication: COLORECTAL CANCER
     Dosage: DAY ONE AND 15 EVERY 28 DAYS
     Route: 042
     Dates: start: 20120411
  6. AMBIEN [Concomitant]
     Route: 048
     Dates: start: 20120419
  7. COUMADIN [Concomitant]
  8. FLUOROURACIL [Suspect]
     Route: 042
  9. TYLENOL (CAPLET) [Concomitant]
     Dosage: 3285-650 MG
  10. NOVOLOG [Concomitant]
  11. CELEXA [Concomitant]
     Route: 048
  12. OXALIPLATIN [Suspect]
     Indication: COLORECTAL CANCER
     Dosage: DAY ONE AND 15 EVERY 28 DAYS
     Route: 042
     Dates: start: 20120314, end: 20120314
  13. LEUCOVORIN CALCIUM [Suspect]
     Route: 042
  14. LANTUS [Concomitant]
  15. ALL OTHER THERAPEUTIC PRODUCTS [Concomitant]
  16. FLUOROURACIL [Suspect]
     Dosage: DAY ONE AND 15 EVERY 28 DAYS
     Route: 042
     Dates: start: 20120411
  17. BEVACIZUMAB [Suspect]
     Indication: COLORECTAL CANCER
     Route: 042
  18. BEVACIZUMAB [Suspect]
     Dosage: DAY ONE AND 15 EVERY 28 DAYS
     Route: 042
     Dates: start: 20120411
  19. FLUOROURACIL [Suspect]
     Indication: COLORECTAL CANCER
     Dosage: DAY ONE AND 15 EVERY 28 DAYS
     Route: 042
     Dates: start: 20120411
  20. CALCIUM/MAGNESIUM [Concomitant]
     Route: 048
     Dates: start: 20120415
  21. OXALIPLATIN [Suspect]
     Dosage: DAY ONE AND 15 EVERY 28 DAYS
     Route: 042
     Dates: start: 20120411, end: 20120411
  22. ATIVAN [Concomitant]
     Route: 048

REACTIONS (2)
  - PERICARDIAL EFFUSION [None]
  - CARDIAC TAMPONADE [None]
